FAERS Safety Report 24259256 (Version 1)
Quarter: 2024Q3

REPORT INFORMATION
  Report Type: Spontaneous
  Country: CN (occurrence: None)
  Receive Date: 20240828
  Receipt Date: 20240828
  Transmission Date: 20241017
  Serious: Yes (Other)
  Sender: ASTRAZENECA
  Company Number: 2024A191386

PATIENT
  Age: 71 Year
  Sex: Male

DRUGS (4)
  1. ROSUVASTATIN [Suspect]
     Active Substance: ROSUVASTATIN\ROSUVASTATIN CALCIUM
     Dosage: THE DOCTOR TOLD 2 TABLETS PER DAY AFTER DISCHARGED, AND THE PATIENT ACTUALLY TOOK ONLY 1 TABLET P...
     Route: 048
  2. ROSUVASTATIN [Suspect]
     Active Substance: ROSUVASTATIN\ROSUVASTATIN CALCIUM
     Dosage: THE DOCTOR TOLD 2 TABLETS PER DAY AFTER DISCHARGED, AND THE PATIENT ACTUALLY TOOK ONLY 1 TABLET P...
     Route: 048
  3. ROSUVASTATIN [Suspect]
     Active Substance: ROSUVASTATIN\ROSUVASTATIN CALCIUM
     Dosage: TAKING 1/4 TABLET OF ROSUVASTATIN PER DAY
     Route: 048
  4. PAXLOVID [Suspect]
     Active Substance: NIRMATRELVIR\RITONAVIR

REACTIONS (5)
  - Blood sodium decreased [Unknown]
  - Dysgeusia [Unknown]
  - Lipids decreased [Unknown]
  - COVID-19 [Unknown]
  - Intentional product misuse [Unknown]
